FAERS Safety Report 20923868 (Version 1)
Quarter: 2022Q2

REPORT INFORMATION
  Report Type: Spontaneous
  Country: US (occurrence: None)
  Receive Date: 20220605
  Receipt Date: 20220605
  Transmission Date: 20220721
  Serious: No
  Sender: FDA-Public Use
  Company Number: None

PATIENT
  Age: 79 Year
  Sex: Male
  Weight: 71.55 kg

DRUGS (10)
  1. NEPAFENAC\PREDNISOLONE ACETATE [Suspect]
     Active Substance: NEPAFENAC\PREDNISOLONE ACETATE
     Indication: Cataract operation
     Dosage: OTHER QUANTITY : 2 DROP(S);?FREQUENCY : 3 TIMES A DAY;?
     Route: 047
     Dates: start: 20220604, end: 20220605
  2. OMEPRAZOLE [Concomitant]
     Active Substance: OMEPRAZOLE
  3. TRAZODONE [Concomitant]
     Active Substance: TRAZODONE HYDROCHLORIDE
  4. SIMVASTATIN [Concomitant]
     Active Substance: SIMVASTATIN
  5. FINASTERIDE [Concomitant]
     Active Substance: FINASTERIDE
  6. ATENOLOL [Concomitant]
     Active Substance: ATENOLOL
  7. LEVOTHYROXINE [Concomitant]
     Active Substance: LEVOTHYROXINE
  8. VITAMIN D3 [Concomitant]
     Active Substance: CHOLECALCIFEROL
  9. VITAMIN B12 [Concomitant]
     Active Substance: CYANOCOBALAMIN
  10. IRON [Concomitant]
     Active Substance: IRON

REACTIONS (3)
  - Foreign body in eye [None]
  - Liquid product physical issue [None]
  - Product delivery mechanism issue [None]

NARRATIVE: CASE EVENT DATE: 20220604
